FAERS Safety Report 4539777-3 (Version None)
Quarter: 2004Q4

REPORT INFORMATION
  Report Type: 
  Country: None (occurrence: None)
  Receive Date: 20041222
  Receipt Date: 20041214
  Transmission Date: 20050328
  Serious: Yes (Hospitalization)
  Sender: FDA-Public Use
  Company Number: 001-0981-M0000552

PATIENT
  Age: 56 Year
  Sex: Female
  Weight: 103.8737 kg

DRUGS (13)
  1. ATORVASTATIN (ATORVASTATIN) [Suspect]
     Indication: CARDIAC DISORDER
     Dosage: SEE IMAGE
     Route: 048
     Dates: start: 19981124, end: 19990118
  2. ATORVASTATIN (ATORVASTATIN) [Suspect]
     Indication: CARDIAC DISORDER
     Dosage: SEE IMAGE
     Route: 048
     Dates: start: 19990119, end: 19990722
  3. METOPROLOL TARTRATE [Concomitant]
  4. ESTROGENS (ESTROGENS) [Concomitant]
  5. ASPIRIN [Concomitant]
  6. IPRATROPIUM BROMIDE [Concomitant]
  7. NITROGLYCERIN [Concomitant]
  8. SALBUTAMOL (SALBUTAMOL) [Concomitant]
  9. TORSEMIDE [Concomitant]
  10. CELECOXIB (CELECOXIB) [Concomitant]
  11. LOSARTAN POTASSIUM [Concomitant]
  12. ATORVASTATIN (ATORVASTATIN) [Concomitant]
  13. LEVOTHYROXINE SODIUM [Concomitant]

REACTIONS (3)
  - ANGINA PECTORIS [None]
  - DEEP VEIN THROMBOSIS [None]
  - DISEASE RECURRENCE [None]
